FAERS Safety Report 9269357 (Version 5)
Quarter: 2014Q1

REPORT INFORMATION
  Report Type: Report from Study
  Country: CA (occurrence: CA)
  Receive Date: 20130503
  Receipt Date: 20140318
  Transmission Date: 20141002
  Serious: Yes (Hospitalization, Other)
  Sender: FDA-Public Use
  Company Number: CA-UCBSA-084812

PATIENT
  Age: 48 Year
  Sex: Female
  Weight: 81.81 kg

DRUGS (13)
  1. CIMZIA [Suspect]
     Indication: RHEUMATOID ARTHRITIS
     Dosage: FREQUENCY:Q2WX3, EXPIRY DATE:??/NOV/2014
     Route: 058
     Dates: start: 20120605, end: 20120712
  2. CIMZIA [Suspect]
     Indication: RHEUMATOID ARTHRITIS
     Dosage: EXPIRY DATE:??/NOV/2014
     Route: 058
     Dates: start: 20120912, end: 2013
  3. CIMZIA [Suspect]
     Indication: RHEUMATOID ARTHRITIS
     Dosage: UNKNOWN DOSE
     Route: 058
     Dates: start: 2013, end: 20130809
  4. PREDNISONE [Suspect]
  5. OMEPRAZOLE [Concomitant]
     Indication: GASTROOESOPHAGEAL REFLUX DISEASE
     Route: 048
  6. ARAVA [Concomitant]
     Indication: RHEUMATOID ARTHRITIS
     Route: 048
     Dates: start: 201202
  7. PLAQUENIL [Concomitant]
     Indication: RHEUMATOID ARTHRITIS
     Route: 048
     Dates: start: 201110
  8. METOPROLOL [Concomitant]
     Indication: HYPERTENSION
     Route: 048
  9. RAMIPRIL [Concomitant]
     Indication: HYPERTENSION
     Route: 048
  10. MTX [Concomitant]
     Indication: RHEUMATOID ARTHRITIS
     Route: 058
     Dates: start: 201110
  11. HUMULOG [Concomitant]
     Indication: DIABETES MELLITUS
     Dosage: INSULIN PUMP, FREQUENCY: VARIES
     Route: 058
  12. LIPITOR [Concomitant]
     Indication: HYPERLIPIDAEMIA
     Route: 048
  13. HYDROMORPHONE [Concomitant]
     Indication: PAIN
     Dosage: 4 MG
     Route: 048

REACTIONS (6)
  - Clostridium difficile infection [Recovering/Resolving]
  - Clostridium difficile colitis [Recovered/Resolved]
  - Cystitis [Recovered/Resolved]
  - Diabetic ketoacidosis [Recovered/Resolved]
  - Sarcoidosis [Not Recovered/Not Resolved]
  - Diarrhoea [Not Recovered/Not Resolved]
